FAERS Safety Report 5581468-4 (Version None)
Quarter: 2007Q4

REPORT INFORMATION
  Report Type: 
  Country: None (occurrence: None)
  Receive Date: 20071231
  Receipt Date: 20071231
  Transmission Date: 20080405
  Serious: Yes (Other)
  Sender: FDA-Public Use
  Company Number: None

PATIENT
  Age: 39 Year
  Sex: Female
  Weight: 54.4316 kg

DRUGS (1)
  1. CHANTIX [Suspect]
     Indication: SMOKING CESSATION THERAPY
     Dosage: DAY 1-3 0.5MG / DAY 4-7 0.5MG  ONCE A DAY / TWICE   PO
     Route: 048
     Dates: start: 20071224, end: 20071229

REACTIONS (7)
  - ABNORMAL DREAMS [None]
  - DEPRESSED MOOD [None]
  - DEPRESSION [None]
  - DYSGEUSIA [None]
  - FATIGUE [None]
  - FEELING ABNORMAL [None]
  - RASH [None]
